FAERS Safety Report 25525585 (Version 9)
Quarter: 2025Q3

REPORT INFORMATION
  Report Type: Spontaneous
  Country: US (occurrence: US)
  Receive Date: 20250707
  Receipt Date: 20250908
  Transmission Date: 20251021
  Serious: No
  Sender: PFIZER
  Company Number: US-PFIZER INC-202500039453

PATIENT
  Age: 79 Year
  Sex: Female
  Weight: 45.9 kg

DRUGS (10)
  1. TIVDAK [Suspect]
     Active Substance: TISOTUMAB VEDOTIN-TFTV
     Dosage: 93 MG, EVERY 21 DAYS
     Dates: start: 20250311
  2. TIVDAK [Suspect]
     Active Substance: TISOTUMAB VEDOTIN-TFTV
  3. TIVDAK [Suspect]
     Active Substance: TISOTUMAB VEDOTIN-TFTV
     Dosage: 95 MG, EVERY 3 WEEKS
     Route: 042
  4. TIVDAK [Suspect]
     Active Substance: TISOTUMAB VEDOTIN-TFTV
     Dosage: 95 MG, EVERY 21 DAYS
     Route: 042
  5. TIVDAK [Suspect]
     Active Substance: TISOTUMAB VEDOTIN-TFTV
  6. TIVDAK [Suspect]
     Active Substance: TISOTUMAB VEDOTIN-TFTV
  7. TIVDAK [Suspect]
     Active Substance: TISOTUMAB VEDOTIN-TFTV
     Dosage: 92 MG, EVERY 3 WEEKS
  8. TIVDAK [Suspect]
     Active Substance: TISOTUMAB VEDOTIN-TFTV
     Dosage: 61 MG, EVERY 3 WEEKS
  9. TIVDAK [Suspect]
     Active Substance: TISOTUMAB VEDOTIN-TFTV
     Dosage: 62 MG, EVERY 3 WEEKS
     Route: 042
  10. TIVDAK [Suspect]
     Active Substance: TISOTUMAB VEDOTIN-TFTV
     Dosage: 64 MG, EVERY 21 DAYS (TIVDAK 1.31MG)

REACTIONS (3)
  - Eye disorder [Unknown]
  - Weight increased [Unknown]
  - Off label use [Unknown]
